FAERS Safety Report 4450492-7 (Version None)
Quarter: 2004Q3

REPORT INFORMATION
  Report Type: 
  Country: None (occurrence: None)
  Receive Date: 20040914
  Receipt Date: 20040909
  Transmission Date: 20050211
  Serious: Yes (Other)
  Sender: FDA-Public Use
  Company Number: US-JNJFOC-20040902710

PATIENT
  Age: 4 Month
  Sex: Male
  Weight: 7.7111 kg

DRUGS (1)
  1. ACETAMINOPHEN [Suspect]
     Indication: TEETHING
     Dates: start: 20040908

REACTIONS (1)
  - CONVULSION [None]
